FAERS Safety Report 6420039-4 (Version None)
Quarter: 2009Q4

REPORT INFORMATION
  Report Type: 
  Country: None (occurrence: None)
  Receive Date: 20091029
  Receipt Date: 20090903
  Transmission Date: 20100525
  Serious: No
  Sender: FDA-Public Use
  Company Number: A0799300A

PATIENT
  Age: 57 Year
  Sex: Female

DRUGS (3)
  1. IMITREX [Suspect]
     Indication: MIGRAINE
     Dosage: 20MG AS REQUIRED
     Route: 045
  2. TOPAMAX [Concomitant]
  3. VERAPAMIL [Concomitant]

REACTIONS (2)
  - DRUG INEFFECTIVE [None]
  - PRODUCT QUALITY ISSUE [None]
